FAERS Safety Report 6257885-6 (Version None)
Quarter: 2009Q3

REPORT INFORMATION
  Report Type: 
  Country: None (occurrence: None)
  Receive Date: 20090707
  Receipt Date: 20090626
  Transmission Date: 20100115
  Serious: Yes (Hospitalization, Other)
  Sender: FDA-Public Use
  Company Number: US-RANBAXY-2009US-23220

PATIENT

DRUGS (2)
  1. ISOTRETINOIN [Suspect]
     Indication: DRUG USE FOR UNKNOWN INDICATION
     Dosage: 30 MG, QD
     Route: 048
     Dates: start: 20090228, end: 20090328
  2. ORAL CONTRACEPTIVE [Suspect]
     Indication: CONTRACEPTION
     Route: 048

REACTIONS (4)
  - ABORTION SPONTANEOUS [None]
  - MALAISE [None]
  - PREGNANCY [None]
  - VAGINAL HAEMORRHAGE [None]
